FAERS Safety Report 10945796 (Version 1)
Quarter: 2015Q1

REPORT INFORMATION
  Report Type: Spontaneous
  Country: US (occurrence: US)
  Receive Date: 20150323
  Receipt Date: 20150323
  Transmission Date: 20150721
  Serious: Yes (Hospitalization, Other)
  Sender: FDA-Public Use
  Company Number: US-PFIZER INC-2015098671

PATIENT
  Age: 53 Year
  Sex: Female
  Weight: 75 kg

DRUGS (6)
  1. HYDROMORPHONE [Concomitant]
     Active Substance: HYDROMORPHONE
     Indication: ARTHRALGIA
     Dosage: 8 MG, EVERY 4 HRS, UP TO 4 A DAY
     Route: 048
  2. HYDROCODONE [Concomitant]
     Active Substance: HYDROCODONE
     Indication: BREAKTHROUGH PAIN
     Dosage: 10 MG, 3X/DAY, 2 HRS IN BETWEEN HYDROMORPHONE
     Route: 048
  3. FIORICET [Concomitant]
     Active Substance: ACETAMINOPHEN\BUTALBITAL\CAFFEINE
     Indication: MIGRAINE
     Dosage: AS NEEDED
     Route: 048
  4. ADDERALL XR [Concomitant]
     Active Substance: AMPHETAMINE ASPARTATE\AMPHETAMINE SULFATE\DEXTROAMPHETAMINE SACCHARATE\DEXTROAMPHETAMINE SULFATE
     Dosage: 40 MG, 1X/DAY
     Route: 048
  5. SOMA [Concomitant]
     Active Substance: CARISOPRODOL
     Indication: MUSCLE SPASMS
     Dosage: 350 MG, AS NEEDED
     Route: 048
  6. CELEBREX [Suspect]
     Active Substance: CELECOXIB
     Indication: STICKLER^S SYNDROME
     Dosage: 200 MG, 1X/DAY
     Route: 048

REACTIONS (11)
  - Large intestinal ulcer [Not Recovered/Not Resolved]
  - Nephrolithiasis [Unknown]
  - Abnormal loss of weight [Unknown]
  - Functional gastrointestinal disorder [Unknown]
  - Malnutrition [Unknown]
  - Localised infection [Unknown]
  - Off label use [Unknown]
  - Haemorrhage [Unknown]
  - Skin ulcer [Unknown]
  - Migraine [Unknown]
  - Vomiting [Unknown]

NARRATIVE: CASE EVENT DATE: 2014
